FAERS Safety Report 6000040-5 (Version None)
Quarter: 2008Q4

REPORT INFORMATION
  Report Type: 
  Country: None (occurrence: None)
  Receive Date: 20081215
  Receipt Date: 20081210
  Transmission Date: 20090506
  Serious: Yes (Hospitalization)
  Sender: FDA-Public Use
  Company Number: A0759689A

PATIENT
  Age: 49 Year
  Sex: Female
  Weight: 73.9 kg

DRUGS (3)
  1. LAPATINIB [Suspect]
     Dosage: 750MG PER DAY
     Route: 048
     Dates: start: 20081119
  2. PACLITAXEL [Suspect]
     Dosage: 80MGM2 CYCLIC
     Route: 042
     Dates: start: 20081119
  3. CARBOPLATIN [Suspect]
     Route: 042
     Dates: start: 20081119

REACTIONS (4)
  - CATHETER RELATED INFECTION [None]
  - FEBRILE NEUTROPENIA [None]
  - THROMBOSIS [None]
  - VOMITING [None]
